FAERS Safety Report 14442012 (Version 1)
Quarter: 2018Q1

REPORT INFORMATION
  Report Type: Report from Study
  Country: BE (occurrence: BE)
  Receive Date: 20180125
  Receipt Date: 20180125
  Transmission Date: 20180509
  Serious: Yes (Death, Hospitalization, Other)
  Sender: FDA-Public Use
  Company Number: BE-BRISTOL-MYERS SQUIBB COMPANY-BMS-2018-004770

PATIENT
  Age: 62 Year
  Sex: Male

DRUGS (1)
  1. IPILIMUMAB [Suspect]
     Active Substance: IPILIMUMAB
     Indication: METASTATIC MALIGNANT MELANOMA
     Route: 065

REACTIONS (3)
  - Dizziness [Unknown]
  - Myocarditis [Fatal]
  - Diarrhoea [Unknown]
